FAERS Safety Report 8139828-3 (Version None)
Quarter: 2012Q1

REPORT INFORMATION
  Report Type: 
  Country: None (occurrence: None)
  Receive Date: 20120215
  Receipt Date: 20120207
  Transmission Date: 20120608
  Serious: Yes (Death, Hospitalization)
  Sender: FDA-Public Use
  Company Number: US-CELGENEUS-163-21880-12010638

PATIENT
  Sex: Male
  Weight: 113.95 kg

DRUGS (44)
  1. ZOCOR [Concomitant]
     Dosage: 20 MILLIGRAM
     Route: 065
  2. NORCO [Concomitant]
     Dosage: 5MG-325MG
     Route: 048
     Dates: start: 20110501
  3. WARFARIN SODIUM [Concomitant]
     Route: 065
  4. VANCOMYCIN [Concomitant]
     Dosage: 750 MILLIGRAM
     Route: 041
     Dates: start: 20110501
  5. STOOL SOFTENER [Concomitant]
     Route: 065
  6. REGLAN [Concomitant]
     Dosage: 5 MILLIGRAM
     Route: 048
     Dates: start: 20110325
  7. PROTONIX [Concomitant]
     Dosage: 40 MILLIGRAM
     Route: 048
  8. HYDRALAZINE HCL [Concomitant]
     Dosage: 25 MILLIGRAM
     Route: 048
  9. COUMADIN [Concomitant]
     Indication: PULMONARY EMBOLISM
  10. DILTIAZEM CD [Concomitant]
     Dosage: 360 MILLIGRAM
     Route: 065
     Dates: start: 20100209
  11. HUMALOG [Concomitant]
     Dosage: 6 UNITS
     Route: 065
     Dates: start: 20100209
  12. LANTUS [Concomitant]
     Dosage: 28 UNITS
     Route: 065
  13. HYDRALAZINE HCL [Concomitant]
     Dosage: 50 MILLIGRAM
     Route: 065
  14. OXYCODONE HCL [Concomitant]
     Dosage: 30 MILLIGRAM
     Route: 065
  15. NORCO [Concomitant]
     Indication: PAIN
     Dosage: 2 TABLET
     Route: 048
  16. SIMVASTATIN [Concomitant]
     Dosage: 20 MILLIGRAM
     Route: 065
     Dates: start: 20100209
  17. INSULIN [Concomitant]
     Route: 065
  18. OXYCONTIN [Concomitant]
     Dosage: 30 MILLIGRAM
     Route: 065
  19. COLCHICINE [Concomitant]
     Dosage: .6 MILLIGRAM
     Route: 048
  20. REVLIMID [Suspect]
     Dosage: 5 MILLIGRAM
     Route: 048
     Dates: start: 20110501
  21. COUMADIN [Concomitant]
     Indication: VENOUS THROMBOSIS
     Dosage: 4MG TUES + FRI, 2 MG MON, WED, THURS, SAT, SUN
     Route: 048
     Dates: start: 20100209
  22. SPIRIVA [Concomitant]
     Dosage: 1 PUFF
     Route: 065
     Dates: start: 20100209
  23. ANTIBIOTICS [Concomitant]
     Route: 041
     Dates: start: 20110512
  24. PREDNISONE TAB [Concomitant]
     Dosage: 50 MILLIGRAM
     Route: 048
     Dates: start: 20101221
  25. FUROSEMIDE [Concomitant]
     Dosage: 40 MILLIGRAM
     Route: 048
     Dates: start: 20100319
  26. ALLOPURINOL [Concomitant]
     Dosage: 100 MILLIGRAM
     Route: 065
     Dates: start: 20100209
  27. SENNA [Concomitant]
     Dosage: 1
     Route: 065
  28. MULTI-VITAMINS [Concomitant]
     Route: 065
  29. OXYCONTIN [Concomitant]
     Dosage: 30 MILLIGRAM
     Route: 048
     Dates: start: 20110419
  30. ALKERAN [Concomitant]
     Dosage: 14 MILLIGRAM
     Route: 048
     Dates: start: 20101221
  31. ASCORBIC ACID [Concomitant]
     Route: 065
     Dates: start: 20100209
  32. REVLIMID [Suspect]
     Dosage: 5 MILLIGRAM
     Route: 048
     Dates: start: 20101206
  33. PLAVIX [Concomitant]
     Dosage: 75 MILLIGRAM
     Route: 065
  34. ACYCLOVIR [Concomitant]
     Dosage: 400 MILLIGRAM
     Route: 065
  35. NEURONTIN [Concomitant]
     Dosage: 300 MILLIGRAM
     Route: 065
  36. MULTI-VITAMINS [Concomitant]
     Dosage: 1 TABLET
     Route: 048
     Dates: start: 20100209
  37. REVLIMID [Suspect]
     Dosage: 15 MILLIGRAM
     Route: 048
     Dates: start: 20101221
  38. RECOMBIVAX HB [Concomitant]
     Dosage: 40 MICROGRAM
     Route: 065
  39. HEPARIN [Concomitant]
     Route: 065
  40. DIOVAN [Concomitant]
     Dosage: 80 MILLIGRAM
     Route: 065
     Dates: start: 20100209
  41. HYDROCODONE BITARTRATE AND ACETAMINOPHEN [Concomitant]
     Indication: PAIN
     Dosage: 10MG-325MG
     Route: 048
     Dates: start: 20110505
  42. REVLIMID [Suspect]
     Dosage: 10 MILLIGRAM
     Route: 048
     Dates: start: 20100420, end: 20100824
  43. CYMBALTA [Concomitant]
     Dosage: 60 MILLIGRAM
     Route: 065
  44. REGLAN [Concomitant]
     Indication: NAUSEA
     Dosage: 5MT
     Route: 065

REACTIONS (3)
  - OSTEOMYELITIS [None]
  - MULTIPLE MYELOMA [None]
  - NEUROPATHY PERIPHERAL [None]
